FAERS Safety Report 8710808 (Version 2)
Quarter: 2013Q1

REPORT INFORMATION
  Report Type: Spontaneous
  Country: BR (occurrence: BR)
  Receive Date: 20120807
  Receipt Date: 20130123
  Transmission Date: 20140127
  Serious: Yes (Death, Hospitalization, Other)
  Sender: FDA-Public Use
  Company Number: PHHY2012BR067412

PATIENT
  Sex: Male

DRUGS (11)
  1. EXELON [Suspect]
     Indication: DEMENTIA ALZHEIMER^S TYPE
     Dosage: 2 DF, DAILY
     Route: 048
  2. LIORESAL [Concomitant]
     Indication: MUSCLE SPASMS
     Dosage: 1 DF, DAILY
     Route: 048
  3. LOSARTAN POTASSIUM [Concomitant]
     Indication: HYPERTENSION
     Dosage: 0.5 DF (HALF TABLET), DAILY
     Route: 048
  4. PURAN T4 [Concomitant]
     Indication: THYROID DISORDER
     Dosage: 1 DF, DAILY
     Route: 048
  5. OMEPRAZOLE [Concomitant]
     Indication: GASTROINTESTINAL DISORDER
     Dosage: 1 DF, DAILY
     Route: 048
  6. CITTA [Concomitant]
     Indication: DEPRESSION
     Dosage: 1 DF, DAILY
     Route: 048
  7. FINASTIL [Concomitant]
     Indication: PROSTATIC DISORDER
     Dosage: 1 DF, DAILY
  8. FUROSEMIDE [Concomitant]
     Indication: RENAL DISORDER
     Dosage: 1 DF, QD
     Route: 048
  9. CALTRATE WITH VITAMIN D [Concomitant]
     Indication: BONE DISORDER
     Dosage: 1 DF, DAILY
     Route: 048
  10. ZYLORIC [Concomitant]
     Dosage: 1 DF, DAILY
     Route: 048
  11. HEMAX//ERYTHROPOIETIN [Concomitant]
     Indication: ANAEMIA
     Dosage: 3 DF WEEKLY
     Route: 030

REACTIONS (6)
  - Renal disorder [Fatal]
  - Blood creatinine increased [Fatal]
  - Cardiac arrest [Fatal]
  - Spinal fracture [Unknown]
  - Spinal cord injury [Unknown]
  - Fall [Unknown]
